FAERS Safety Report 21382566 (Version 3)
Quarter: 2022Q4

REPORT INFORMATION
  Report Type: Report from Study
  Country: DK (occurrence: None)
  Receive Date: 20220927
  Receipt Date: 20221006
  Transmission Date: 20230113
  Serious: Yes (Hospitalization)
  Sender: FDA-Public Use
  Company Number: DK-ROCHE-3182289

PATIENT
  Age: 58 Year
  Sex: Male
  Weight: 78.2 kg

DRUGS (7)
  1. ATEZOLIZUMAB [Suspect]
     Active Substance: ATEZOLIZUMAB
     Indication: Renal cell carcinoma
     Dosage: ON 10/MAY/2022, MOST RECENT DOSE OF ATEZOLIZUMAB DRUG ADMIN PRIOR AE AND SAE IS 1200 MG.
     Route: 041
     Dates: start: 20210914
  2. CABOZANTINIB [Suspect]
     Active Substance: CABOZANTINIB
     Indication: Renal cell carcinoma
     Dosage: DOSE LAST STUDY DRUG ADMIN PRIOR AE AND SAE IS 40 MG ON 29/MAY/2022.
     Route: 048
     Dates: start: 20210914
  3. UNIKALK FORTE [Concomitant]
     Route: 048
     Dates: start: 20220124
  4. MAGNESIUM [Concomitant]
     Active Substance: MAGNESIUM
     Indication: Hypomagnesaemia
     Route: 048
     Dates: start: 20220407
  5. AXITINIB [Concomitant]
     Active Substance: AXITINIB
     Indication: Acute kidney injury
     Dates: start: 20220606
  6. PREDNISOLONE [Concomitant]
     Active Substance: PREDNISOLONE
     Route: 048
     Dates: start: 20220906, end: 20220914
  7. PANTOPRAZOLE [Concomitant]
     Active Substance: PANTOPRAZOLE
     Route: 048
     Dates: start: 20220907

REACTIONS (1)
  - Immune-mediated nephritis [Not Recovered/Not Resolved]

NARRATIVE: CASE EVENT DATE: 20220913
